FAERS Safety Report 18899352 (Version 5)
Quarter: 2022Q2

REPORT INFORMATION
  Report Type: Spontaneous
  Country: CA (occurrence: CA)
  Receive Date: 20210216
  Receipt Date: 20220602
  Transmission Date: 20220721
  Serious: Yes (Other)
  Sender: FDA-Public Use
  Company Number: CA-PFIZER INC-2021115888

PATIENT
  Age: 29 Year
  Sex: Male

DRUGS (5)
  1. GENOTROPIN [Suspect]
     Active Substance: SOMATROPIN
     Indication: Growth hormone deficiency
     Dosage: 1 DF (DISCONTINUED DOSAGE)
     Route: 058
  2. GENOTROPIN [Suspect]
     Active Substance: SOMATROPIN
     Dosage: 200 UG, 1X/DAY
     Route: 058
  3. GENOTROPIN [Suspect]
     Active Substance: SOMATROPIN
     Dosage: 300 UG, 1X/DAY
     Route: 058
  4. GENOTROPIN [Suspect]
     Active Substance: SOMATROPIN
     Dosage: 400 UG, 1X/DAY
     Route: 058
  5. SYNTHROID [Concomitant]
     Active Substance: LEVOTHYROXINE SODIUM
     Indication: Hypothyroidism
     Dosage: 88 UG, DAILY

REACTIONS (6)
  - Hypothyroidism [Unknown]
  - Therapeutic response decreased [Unknown]
  - Androgen deficiency [Unknown]
  - Accident at work [Unknown]
  - Back injury [Unknown]
  - Intervertebral disc protrusion [Unknown]

NARRATIVE: CASE EVENT DATE: 20200701
